FAERS Safety Report 11774835 (Version 1)
Quarter: 2015Q4

REPORT INFORMATION
  Report Type: Spontaneous
  Country: US (occurrence: US)
  Receive Date: 20151124
  Receipt Date: 20151124
  Transmission Date: 20160304
  Serious: Yes (Death)
  Sender: FDA-Public Use
  Company Number: US-BAYER-2015-468063

PATIENT
  Age: 52 Year
  Sex: Male
  Weight: 81.63 kg

DRUGS (1)
  1. BAYER GENUINE ASPIRIN [Suspect]
     Active Substance: ASPIRIN
     Indication: HEADACHE
     Dosage: 1 DF, ONCE
     Route: 048

REACTIONS (2)
  - Death [Fatal]
  - Drug hypersensitivity [None]
